FAERS Safety Report 11189187 (Version 2)
Quarter: 2015Q3

REPORT INFORMATION
  Report Type: Spontaneous
  Country: DE (occurrence: None)
  Receive Date: 20150611
  Receipt Date: 20150702
  Transmission Date: 20151125
  Serious: Yes (Hospitalization, Other)
  Sender: FDA-Public Use
  Company Number: DE2015GSK078765

PATIENT
  Age: 36 Day
  Sex: Male
  Weight: 2.5 kg

DRUGS (3)
  1. AMPICILLIN [Concomitant]
     Active Substance: AMPICILLIN
  2. RETROVIR [Suspect]
     Active Substance: ZIDOVUDINE
     Indication: HIV INFECTION
     Route: 048
     Dates: start: 201506, end: 201506
  3. GENTAMICIN. [Concomitant]
     Active Substance: GENTAMICIN

REACTIONS (5)
  - Hypophagia [None]
  - Respiratory disorder [None]
  - Respiratory failure [None]
  - Blood potassium increased [None]
  - Renal failure [None]

NARRATIVE: CASE EVENT DATE: 201506
